FAERS Safety Report 18383066 (Version 1)
Quarter: 2020Q4

REPORT INFORMATION
  Report Type: Spontaneous
  Country: US (occurrence: US)
  Receive Date: 20201013
  Receipt Date: 20201013
  Transmission Date: 20210114
  Serious: Yes (Hospitalization)
  Sender: FDA-Public Use
  Company Number: None

PATIENT
  Age: 47 Year
  Sex: Female
  Weight: 88.5 kg

DRUGS (5)
  1. OMEPRAZOLE. [Concomitant]
     Active Substance: OMEPRAZOLE
  2. ESTRADIOL. [Concomitant]
     Active Substance: ESTRADIOL
  3. HUMIRA [Suspect]
     Active Substance: ADALIMUMAB
  4. BUDESONIDE. [Concomitant]
     Active Substance: BUDESONIDE
  5. CHOLECALCIFEROL [Concomitant]
     Active Substance: CHOLECALCIFEROL

REACTIONS (3)
  - Colitis ulcerative [None]
  - Iron deficiency [None]
  - Drug ineffective [None]

NARRATIVE: CASE EVENT DATE: 20190813
